FAERS Safety Report 4782570-7 (Version None)
Quarter: 2005Q3

REPORT INFORMATION
  Report Type: 
  Country: None (occurrence: None)
  Receive Date: 20050929
  Receipt Date: 20050330
  Transmission Date: 20060218
  Serious: No
  Sender: FDA-Public Use
  Company Number: 402270

PATIENT
  Sex: Female

DRUGS (6)
  1. COREG [Suspect]
     Indication: HYPERTENSION
     Dosage: 25MG TWICE PER DAY
     Route: 048
     Dates: start: 20041215, end: 20050330
  2. ZETIA [Suspect]
  3. PAXIL CR [Concomitant]
  4. PROVERA [Concomitant]
  5. MAVIK [Concomitant]
  6. NORVASC [Concomitant]

REACTIONS (3)
  - INSOMNIA [None]
  - OEDEMA PERIPHERAL [None]
  - PRURITUS [None]
